FAERS Safety Report 17556867 (Version 1)
Quarter: 2020Q1

REPORT INFORMATION
  Report Type: Spontaneous
  Country: DE (occurrence: DE)
  Receive Date: 20200318
  Receipt Date: 20200318
  Transmission Date: 20200409
  Serious: Yes (Hospitalization, Other)
  Sender: FDA-Public Use
  Company Number: DE-ENDO PHARMACEUTICALS INC-2020-002308

PATIENT
  Age: 71 Year
  Sex: Male

DRUGS (2)
  1. AVEED [Suspect]
     Active Substance: TESTOSTERONE UNDECANOATE
     Indication: ANDROGEN DEFICIENCY
     Dosage: 1000 MG, EVERY 3 MONTHS
     Route: 030
     Dates: start: 200505
  2. PHOSPHODIESTERASE INHIBITORS [Concomitant]
     Active Substance: UNSPECIFIED INGREDIENT
     Indication: PRODUCT USED FOR UNKNOWN INDICATION
     Dosage: UNK UNKNOWN, UNK
     Route: 065

REACTIONS (6)
  - Haemochromatosis [Unknown]
  - Cerebral haemorrhage [Recovered/Resolved with Sequelae]
  - Deep vein thrombosis [Unknown]
  - Prostatic obstruction [Recovered/Resolved]
  - Peripheral artery aneurysm [Unknown]
  - Benign prostatic hyperplasia [Recovered/Resolved]

NARRATIVE: CASE EVENT DATE: 201612
